FAERS Safety Report 5485234-X (Version None)
Quarter: 2007Q4

REPORT INFORMATION
  Report Type: 
  Country: None (occurrence: None)
  Receive Date: 20071009
  Receipt Date: 20071009
  Transmission Date: 20080405
  Serious: No
  Sender: FDA-Public Use
  Company Number: None

PATIENT
  Age: 84 Year
  Sex: Male

DRUGS (1)
  1. GALANTAMINE HYDROBROMIDE [Suspect]
     Dosage: 8MG BID PO
     Route: 048
     Dates: start: 20070718, end: 20070924

REACTIONS (2)
  - PRURITUS [None]
  - URTICARIA [None]
